FAERS Safety Report 10308850 (Version 2)
Quarter: 2014Q3

REPORT INFORMATION
  Report Type: Spontaneous
  Country: DE (occurrence: None)
  Receive Date: 20140714
  Receipt Date: 20140716
  Transmission Date: 20150326
  Serious: Yes (Death, Life-Threatening, Hospitalization, Other)
  Sender: FDA-Public Use
  Company Number: AUR-APL-2014-07314

PATIENT
  Age: 58 Year
  Sex: Male

DRUGS (2)
  1. ASS (ACETYLSALICYLIC ACID) [Concomitant]
  2. METFORMIN 1000MG (METFORMIN) UNKNOWN, 1000MG [Suspect]
     Active Substance: METFORMIN HYDROCHLORIDE
     Indication: TYPE 2 DIABETES MELLITUS
     Route: 048

REACTIONS (4)
  - Overdose [None]
  - Lactic acidosis [None]
  - Drug level above therapeutic [None]
  - Septic shock [None]

NARRATIVE: CASE EVENT DATE: 20140522
